FAERS Safety Report 15905639 (Version 1)
Quarter: 2019Q1

REPORT INFORMATION
  Report Type: Spontaneous
  Country: US (occurrence: US)
  Receive Date: 20190204
  Receipt Date: 20190204
  Transmission Date: 20190417
  Serious: No
  Sender: FDA-Public Use
  Company Number: US-BAYER-2019-023788

PATIENT
  Age: 54 Year
  Sex: Female

DRUGS (2)
  1. MEDROL [Concomitant]
     Active Substance: METHYLPREDNISOLONE
  2. MAGNEVIST [Suspect]
     Active Substance: GADOPENTETATE DIMEGLUMINE
     Indication: NUCLEAR MAGNETIC RESONANCE IMAGING HEART
     Dosage: UNK UNK, ONCE
     Dates: start: 20190128

REACTIONS (9)
  - Headache [None]
  - Injection site pain [None]
  - Nausea [None]
  - Pain of skin [None]
  - Peripheral swelling [None]
  - Myalgia [None]
  - Urticaria [None]
  - Oral pruritus [None]
  - Asthenia [None]
